FAERS Safety Report 6794991-1 (Version None)
Quarter: 2010Q2

REPORT INFORMATION
  Report Type: 
  Country: None (occurrence: None)
  Receive Date: 20100625
  Receipt Date: 20100610
  Transmission Date: 20101027
  Serious: Yes (Hospitalization, Other)
  Sender: FDA-Public Use
  Company Number: PHEH2006US02049

PATIENT
  Sex: Female
  Weight: 89.342 kg

DRUGS (19)
  1. AREDIA [Suspect]
  2. ZOMETA [Suspect]
     Dates: end: 20051213
  3. LIPITOR [Concomitant]
     Dosage: 10 MG, QD
     Route: 048
  4. PREMARIN [Concomitant]
     Dosage: 0.625 MG, QD
     Route: 048
  5. HYDROCHLOROTHIAZIDE [Concomitant]
     Dosage: 25 MG, QD
     Route: 048
  6. XANAX [Concomitant]
     Dosage: UNK, PRN
  7. ANASTROZOLE [Concomitant]
     Dosage: 1 MG, QD
  8. TAMOXIFEN [Concomitant]
  9. POTASSIUM [Concomitant]
  10. ASPIRIN [Concomitant]
  11. GEMCITABINE HCL [Concomitant]
  12. TAXOL [Concomitant]
  13. CELEXA [Concomitant]
  14. PERCOCET [Concomitant]
  15. ARIMIDEX [Concomitant]
  16. METOPROLOL TARTRATE [Concomitant]
  17. ASPIRIN [Concomitant]
  18. MULTI-VITAMIN [Concomitant]
  19. IBUPROFEN [Concomitant]

REACTIONS (36)
  - BLOOD PRESSURE INCREASED [None]
  - BONE DISORDER [None]
  - BRONCHITIS [None]
  - CARPAL TUNNEL SYNDROME [None]
  - CHANGE OF BOWEL HABIT [None]
  - CHEST PAIN [None]
  - CHILLS [None]
  - COLONIC POLYP [None]
  - COLONOSCOPY ABNORMAL [None]
  - COMPUTERISED TOMOGRAM ABDOMEN ABNORMAL [None]
  - COMPUTERISED TOMOGRAM THORAX ABNORMAL [None]
  - CONSTIPATION [None]
  - COUGH [None]
  - DIVERTICULUM INTESTINAL [None]
  - DYSPNOEA [None]
  - HAEMORRHOIDS [None]
  - HEART RATE INCREASED [None]
  - HYPOAESTHESIA [None]
  - METASTASES TO BONE [None]
  - METASTATIC NEOPLASM [None]
  - MIDDLE INSOMNIA [None]
  - OEDEMA PERIPHERAL [None]
  - OSTEONECROSIS OF JAW [None]
  - OSTEOPENIA [None]
  - OVARIAN MASS [None]
  - PAIN [None]
  - PAIN IN JAW [None]
  - PLEURAL EFFUSION [None]
  - PNEUMONIA [None]
  - PNEUMOTHORAX [None]
  - POSITRON EMISSION TOMOGRAM ABNORMAL [None]
  - PULMONARY CONGESTION [None]
  - TOOTH EXTRACTION [None]
  - URINARY TRACT INFECTION [None]
  - WHEEZING [None]
  - X-RAY ABNORMAL [None]
